FAERS Safety Report 14068599 (Version 1)
Quarter: 2017Q4

REPORT INFORMATION
  Report Type: Spontaneous
  Country: DE (occurrence: DE)
  Receive Date: 20171010
  Receipt Date: 20171010
  Transmission Date: 20180321
  Serious: Yes (Hospitalization)
  Sender: FDA-Public Use
  Company Number: DE-ASTRAZENECA-2017SF02884

PATIENT
  Age: 71 Year
  Sex: Male
  Weight: 111 kg

DRUGS (3)
  1. BYETTA [Suspect]
     Active Substance: EXENATIDE
     Route: 065
     Dates: start: 20150625, end: 20160113
  2. METFORMIN [Concomitant]
     Active Substance: METFORMIN HYDROCHLORIDE
     Dates: start: 20150602, end: 20160113
  3. ASPIRIN. [Concomitant]
     Active Substance: ASPIRIN
     Dates: start: 20150729

REACTIONS (1)
  - Abdominal abscess [Recovered/Resolved]
